FAERS Safety Report 4714620-8 (Version None)
Quarter: 2005Q3

REPORT INFORMATION
  Report Type: 
  Country: None (occurrence: None)
  Receive Date: 20050714
  Receipt Date: 20050714
  Transmission Date: 20060218
  Serious: Yes (Hospitalization)
  Sender: FDA-Public Use
  Company Number: None

PATIENT
  Sex: Male

DRUGS (13)
  1. TERAZOSIN HCL [Suspect]
     Indication: HYPERTENSION
     Dosage: 2 MG  HS ORAL
     Route: 048
  2. TESTOSTERONE [Concomitant]
  3. DIPHENYDRAMINE [Concomitant]
  4. PREDNISONE [Concomitant]
  5. DORZOLAMIDE/TIMOLOL [Concomitant]
  6. FOLIC ACID [Concomitant]
  7. COLESTIPOL [Concomitant]
  8. LEVOTHYROXINE [Concomitant]
  9. CYANOCOBALAMIN [Concomitant]
  10. ASPIRIN [Concomitant]
  11. METOPROLOL SUCCINATE [Concomitant]
  12. HYDROCHLOROTHIAZIDE [Concomitant]
  13. LISINOPRIL [Concomitant]

REACTIONS (1)
  - ORTHOSTATIC HYPOTENSION [None]
